FAERS Safety Report 12172536 (Version 8)
Quarter: 2016Q3

REPORT INFORMATION
  Report Type: Report from Study
  Country: US (occurrence: US)
  Receive Date: 20160311
  Receipt Date: 20160907
  Transmission Date: 20161109
  Serious: Yes (Hospitalization)
  Sender: FDA-Public Use
  Company Number: US-ABBVIE-16P-163-1575299-00

PATIENT
  Age: 53 Year
  Sex: Female

DRUGS (28)
  1. OMBITASVIR/PARITAPREVIR/RITONAVIR [Suspect]
     Active Substance: OMBITASVIR\PARITAPREVIR\RITONAVIR
     Indication: HEPATITIS C
     Dosage: 150/100/25 MG IN 1D
     Route: 048
     Dates: start: 20160111, end: 20160227
  2. RIBAVIRIN. [Suspect]
     Active Substance: RIBAVIRIN
     Indication: HEPATITIS C
     Route: 048
     Dates: start: 20160111, end: 20160227
  3. CRANBERRY. [Concomitant]
     Active Substance: CRANBERRY
     Indication: PROPHYLAXIS URINARY TRACT INFECTION
     Dosage: 2 PILLS
     Route: 048
     Dates: start: 201508
  4. BUPROPION. [Concomitant]
     Active Substance: BUPROPION
     Indication: DEPRESSION
     Route: 048
     Dates: start: 201507
  5. OXYCODONE [Concomitant]
     Active Substance: OXYCODONE
     Indication: BACK PAIN
  6. PHENTERMINE. [Concomitant]
     Active Substance: PHENTERMINE
     Indication: OBESITY
     Route: 048
     Dates: start: 201507, end: 20160107
  7. TOPIRAMATE. [Concomitant]
     Active Substance: TOPIRAMATE
     Indication: OBESITY
     Dosage: AT BEDTIME
     Route: 048
     Dates: start: 20151019, end: 20160329
  8. PREDNISONE. [Concomitant]
     Active Substance: PREDNISONE
     Indication: TENOSYNOVITIS
     Route: 048
     Dates: start: 20160213, end: 20160217
  9. OMBITASVIR/PARITAPREVIR/RITONAVIR [Suspect]
     Active Substance: OMBITASVIR\PARITAPREVIR\RITONAVIR
     Dosage: 150/100/25 MG IN 1D
     Route: 048
     Dates: start: 20160516, end: 20160805
  10. DASABUVIR [Suspect]
     Active Substance: DASABUVIR
     Indication: HEPATITIS C
     Route: 048
     Dates: start: 20160111, end: 20160227
  11. ESCITALOPRAM [Concomitant]
     Active Substance: ESCITALOPRAM OXALATE
     Indication: DEPRESSION
  12. ZOLPIDEM [Concomitant]
     Active Substance: ZOLPIDEM\ZOLPIDEM TARTRATE
     Indication: INSOMNIA
     Dosage: AT BEDTIME
     Route: 048
     Dates: start: 20150515, end: 20160227
  13. AMLODIPINE [Concomitant]
     Active Substance: AMLODIPINE BESYLATE
     Route: 048
     Dates: start: 20160105, end: 20160227
  14. ESCITALOPRAM [Concomitant]
     Active Substance: ESCITALOPRAM OXALATE
     Indication: ANXIETY
     Route: 048
     Dates: start: 20150601
  15. TRAMADOL. [Concomitant]
     Active Substance: TRAMADOL
     Indication: BACK PAIN
     Dosage: 50-100MG EVERY 8 HOURS AS REQUIRED
     Route: 048
     Dates: start: 20150527, end: 20160331
  16. PERCOCET [Concomitant]
     Active Substance: ACETAMINOPHEN\OXYCODONE HYDROCHLORIDE
     Indication: TENOSYNOVITIS
     Route: 048
     Dates: start: 20160213, end: 20160213
  17. MULTIVITAMINUM [Concomitant]
     Indication: NUTRITIONAL SUPPLEMENTATION
     Dosage: 2 PILLS
     Route: 048
     Dates: start: 201508
  18. OMEGA 3 [Concomitant]
     Active Substance: OMEGA-3 FATTY ACIDS
     Indication: NUTRITIONAL SUPPLEMENTATION
     Dosage: 2 PILLS
     Route: 048
     Dates: start: 201509
  19. DIAZEPAM. [Concomitant]
     Active Substance: DIAZEPAM
     Indication: ANXIETY
     Dosage: BID, AS REQUIRED ANXIETY ATTACK
     Route: 048
     Dates: start: 201506, end: 20160110
  20. DIAZEPAM. [Concomitant]
     Active Substance: DIAZEPAM
     Indication: GENERALISED ANXIETY DISORDER
     Dosage: 5 MG EVERY 12 HOURS AS NEEDED ANXIETY ATTACK
     Route: 048
     Dates: start: 201506, end: 20160322
  21. AMLODIPINE [Concomitant]
     Active Substance: AMLODIPINE BESYLATE
     Indication: HYPERTENSION
     Route: 048
     Dates: start: 20150527, end: 20160104
  22. RIBAVIRIN. [Suspect]
     Active Substance: RIBAVIRIN
     Route: 048
     Dates: start: 20160516
  23. OXYCODONE [Concomitant]
     Active Substance: OXYCODONE
     Indication: BACK PAIN
     Dosage: 5/325, EVERY 4-6 HOURS
     Route: 048
     Dates: start: 20151118
  24. ROBITUSSIN PEAK COLD COUGH+CHEST CONGESTION D [Concomitant]
     Indication: SINUSITIS
     Dosage: 15-30 ML; TWO TIMES PER NIGHT
     Route: 048
     Dates: start: 20151224, end: 20160109
  25. DASABUVIR [Suspect]
     Active Substance: DASABUVIR
     Route: 048
     Dates: start: 20160516
  26. OXYCODONE [Concomitant]
     Active Substance: OXYCODONE
     Indication: TENDONITIS
  27. PHENTERMINE. [Concomitant]
     Active Substance: PHENTERMINE
     Route: 048
     Dates: start: 20160122, end: 20160325
  28. CALAMINE [Concomitant]
     Active Substance: CALAMINE\FERRIC OXIDE RED\ZINC OXIDE
     Indication: RASH
     Dosage: 1 APPLICATION
     Route: 061
     Dates: start: 20160218, end: 20160218

REACTIONS (1)
  - Psychotic disorder [Recovered/Resolved]

NARRATIVE: CASE EVENT DATE: 20160227
